FAERS Safety Report 8838143 (Version 1)
Quarter: 2012Q4

REPORT INFORMATION
  Report Type: 
  Country: GB (occurrence: GB)
  Receive Date: 20121012
  Receipt Date: 20121012
  Transmission Date: 20130627
  Serious: Yes (Other)
  Sender: FDA-Public Use
  Company Number: GB-ABBOTT-12P-167-0992117-00

PATIENT
  Age: 32 Year
  Sex: Male

DRUGS (9)
  1. CLARITHROMYCIN [Suspect]
     Indication: LOWER RESPIRATORY TRACT INFECTION
     Dosage: Cumulative dose to first reaction: 500.0 mg
     Dates: start: 20101224, end: 20101229
  2. VALPROATE SODIUM [Interacting]
  3. VALPROATE SODIUM [Interacting]
  4. ZAPONEX [Suspect]
     Indication: SCHIZOPHRENIA
     Dosage: Mane
     Dates: start: 20060308, end: 20101229
  5. ZAPONEX [Suspect]
     Dosage: Nocte
     Dates: start: 20060308, end: 20101229
  6. AMISULPRIDE [Concomitant]
     Indication: PRODUCT USED FOR UNKNOWN INDICATION
  7. PARACETAMOL [Concomitant]
     Indication: PRODUCT USED FOR UNKNOWN INDICATION
  8. CALCEOS [Concomitant]
     Indication: PRODUCT USED FOR UNKNOWN INDICATION
  9. OMEPRAZOLE [Concomitant]
     Indication: PRODUCT USED FOR UNKNOWN INDICATION

REACTIONS (12)
  - Blood disorder [Unknown]
  - Productive cough [Recovered/Resolved]
  - Neutropenia [Recovered/Resolved]
  - Tachycardia [Recovered/Resolved]
  - Oropharyngeal pain [Recovered/Resolved]
  - Lower respiratory tract infection [Recovered/Resolved]
  - Neutrophil count decreased [Recovered/Resolved]
  - White blood cell count decreased [Recovered/Resolved]
  - Headache [Recovered/Resolved]
  - Pyrexia [Recovered/Resolved]
  - Heart rate increased [Unknown]
  - Drug interaction [Unknown]
